FAERS Safety Report 23545194 (Version 2)
Quarter: 2024Q2

REPORT INFORMATION
  Report Type: Spontaneous
  Country: FR (occurrence: FR)
  Receive Date: 20240220
  Receipt Date: 20240503
  Transmission Date: 20240715
  Serious: Yes (Death, Life-Threatening, Hospitalization)
  Sender: FDA-Public Use
  Company Number: None

PATIENT
  Age: 84 Year
  Sex: Female
  Weight: 52.5 kg

DRUGS (2)
  1. METHOTREXATE SODIUM [Suspect]
     Active Substance: METHOTREXATE SODIUM
     Indication: Rheumatoid arthritis
     Dosage: 1 DOSAGE FORM DAILY (EXECPT ON 08-DEC-2023)
     Route: 058
     Dates: start: 20231205, end: 20231211
  2. METHOTREXATE SODIUM [Suspect]
     Active Substance: METHOTREXATE SODIUM
     Indication: Rheumatoid arthritis
     Dosage: ON MONDAYS
     Route: 058

REACTIONS (7)
  - Accidental overdose [Fatal]
  - Stomatitis [Recovering/Resolving]
  - Erysipelas [Recovering/Resolving]
  - Swelling face [Recovering/Resolving]
  - General physical health deterioration [Fatal]
  - Bone marrow failure [Fatal]
  - Inappropriate schedule of product administration [Fatal]

NARRATIVE: CASE EVENT DATE: 20231201
